FAERS Safety Report 26182448 (Version 1)
Quarter: 2025Q4

REPORT INFORMATION
  Report Type: Spontaneous
  Country: CO (occurrence: CO)
  Receive Date: 20251221
  Receipt Date: 20251221
  Transmission Date: 20260118
  Serious: Yes (Hospitalization)
  Sender: TAKEDA
  Company Number: CO-TAKEDA-2025TUS100379

PATIENT
  Age: 5 Year
  Sex: Male
  Weight: 23 kg

DRUGS (12)
  1. LIVTENCITY [Suspect]
     Active Substance: MARIBAVIR
     Indication: Product used for unknown indication
     Dosage: UNK
     Dates: start: 20251113, end: 20251125
  2. LIVTENCITY [Suspect]
     Active Substance: MARIBAVIR
     Dosage: 200 MILLIGRAM, Q12H
     Dates: start: 20251211
  3. HYDROCHLOROTHIAZIDE [Suspect]
     Active Substance: HYDROCHLOROTHIAZIDE
     Indication: Product used for unknown indication
     Dosage: 12.5 MILLIGRAM, QD
  4. PREDNISOLONE [Suspect]
     Active Substance: PREDNISOLONE
     Indication: Product used for unknown indication
     Dosage: UNK, QD
     Dates: start: 20250925
  5. ENALAPRIL [Suspect]
     Active Substance: ENALAPRIL
     Indication: Product used for unknown indication
     Dosage: 2.5 MILLIGRAM, QD
  6. VITAMIN D [Suspect]
     Active Substance: VITAMIN D NOS
     Indication: Product used for unknown indication
     Dosage: 3000 INTERNATIONAL UNIT, QD
  7. LETERMOVIR [Concomitant]
     Active Substance: LETERMOVIR
     Dosage: UNK
  8. RUXOLITINIB [Concomitant]
     Active Substance: RUXOLITINIB
     Dosage: 5 MILLIGRAM, QD
     Dates: start: 20250706
  9. VORICONAZOLE [Concomitant]
     Active Substance: VORICONAZOLE
     Dosage: 200 MILLIGRAM, Q12H
     Dates: start: 20251102
  10. ACYCLOVIR [Concomitant]
     Active Substance: ACYCLOVIR
     Dosage: 400 MILLIGRAM, Q12H
     Dates: start: 20251127
  11. SULFAMETHOXAZOLE AND TRIMETHOPRIM [Concomitant]
     Active Substance: SULFAMETHOXAZOLE\TRIMETHOPRIM
     Dosage: 48 MILLIGRAM, Q12H
     Dates: start: 20251103
  12. FOSCARNET [Concomitant]
     Active Substance: FOSCARNET
     Dosage: UNK

REACTIONS (3)
  - Cytomegalovirus infection [Unknown]
  - Product prescribing issue [Unknown]
  - Off label use [Unknown]
